FAERS Safety Report 7797969-4 (Version None)
Quarter: 2011Q4

REPORT INFORMATION
  Report Type: 
  Country: None (occurrence: None)
  Receive Date: 20111005
  Receipt Date: 20110930
  Transmission Date: 20120403
  Serious: Yes (Hospitalization)
  Sender: FDA-Public Use
  Company Number: US-GLAXOSMITHKLINE-A0946997A

PATIENT
  Sex: Female
  Weight: 58.6 kg

DRUGS (3)
  1. PAZOPANIB [Suspect]
     Indication: UTERINE CANCER
     Dosage: 800MG PER DAY
     Route: 048
     Dates: start: 20110830, end: 20110909
  2. CHEMOTHERAPY [Concomitant]
     Dates: start: 20110401, end: 20110701
  3. RADIATION THERAPY [Concomitant]
     Dates: start: 20110401, end: 20110501

REACTIONS (6)
  - ASTHENIA [None]
  - DIARRHOEA [None]
  - DEHYDRATION [None]
  - FATIGUE [None]
  - BLOOD SODIUM DECREASED [None]
  - URINARY TRACT INFECTION [None]
